FAERS Safety Report 5725002-4 (Version None)
Quarter: 2008Q2

REPORT INFORMATION
  Report Type: 
  Country: None (occurrence: None)
  Receive Date: 20080501
  Receipt Date: 20080424
  Transmission Date: 20081010
  Serious: Yes (Death)
  Sender: FDA-Public Use
  Company Number: KR-ROCHE-560553

PATIENT
  Sex: Male
  Weight: 41.4 kg

DRUGS (30)
  1. CAPECITABINE [Suspect]
     Indication: GASTRIC CANCER
     Dosage: GIVEN ON DAY 1-14 OF EVERY 3 WEEK CYCLE.
     Route: 048
     Dates: start: 20070302, end: 20080407
  2. TRASTUZUMAB [Suspect]
     Indication: GASTRIC CANCER
     Dosage: LOADING DOSE ON DAY 1 AS PER PROTOCOL.
     Route: 042
     Dates: start: 20070302
  3. TRASTUZUMAB [Suspect]
     Dosage: MAINTENANCE DOSE AS PER PROTOCOL. DOSING AMOUNT REPORTED AS 267MG.
     Route: 042
     Dates: start: 20070323, end: 20080407
  4. CISPLATIN [Suspect]
     Indication: GASTRIC CANCER
     Route: 042
     Dates: start: 20070302, end: 20080407
  5. ACETAMINOPHEN [Concomitant]
     Dates: start: 20070228, end: 20070302
  6. DEXAMETHASONE [Concomitant]
     Dates: start: 20070302, end: 20070325
  7. DEXTROSE [Concomitant]
     Dates: start: 20070227, end: 20070404
  8. FAMOTIDINE [Concomitant]
     Dates: start: 20070301, end: 20070322
  9. FUROSEMIDE [Concomitant]
     Dates: start: 20070302, end: 20070323
  10. GRANISETRON HCL [Concomitant]
     Dates: start: 20070302, end: 20070406
  11. HYOSCINE HBR HYT [Concomitant]
     Dates: start: 20070303, end: 20070322
  12. POTASSIUM CHLORIDE [Concomitant]
     Dates: start: 20070302, end: 20070323
  13. LIDOCAINE [Concomitant]
     Dates: start: 20070216, end: 20070216
  14. LOPERAMIDE HCL [Concomitant]
     Dates: start: 20070303, end: 20070406
  15. MANNITOL [Concomitant]
     Dates: start: 20070302, end: 20070323
  16. MIDAZOLAM HCL [Concomitant]
     Dates: start: 20070216, end: 20070216
  17. MEGESTROL ACETATE [Concomitant]
     Dates: start: 20070316, end: 20070406
  18. METOCLOPRAMIDE [Concomitant]
     Dates: start: 20070303, end: 20070406
  19. DEXTROSE [Concomitant]
     Dosage: REPORTED AS DEXTROSE AND NA K2
     Dates: start: 20070307, end: 20070307
  20. NIZATIDINE [Concomitant]
     Dates: start: 20070214, end: 20070227
  21. ONDANSETRON [Concomitant]
     Dates: start: 20070323, end: 20070325
  22. 1 CONCOMITANT DRUG [Concomitant]
     Dosage: REPORTED AS 'CLETAMIN'
     Dates: start: 20070404, end: 20070404
  23. PHENIRAMINE [Concomitant]
     Dates: start: 20070227, end: 20070227
  24. PHAZYME [Concomitant]
     Dates: start: 20070228, end: 20070406
  25. PHAZYME [Concomitant]
     Dates: start: 20070228, end: 20070406
  26. SUCRALFATE [Concomitant]
     Dates: start: 20070214, end: 20070227
  27. TRAMADOL HCL [Concomitant]
     Dates: start: 20070228, end: 20070322
  28. ZOLPIDEM [Concomitant]
     Dates: start: 20070217, end: 20070309
  29. HEXOMEDINE [Concomitant]
     Dosage: REPORTED AS HEXOMEDINE SOLUTION.
     Dates: start: 20070404, end: 20070406
  30. BENCIDAMINE [Concomitant]
     Dosage: REPORTED AS BENZYDAMINE GARGLE.
     Dates: start: 20070404, end: 20070406

REACTIONS (1)
  - DEATH [None]
